FAERS Safety Report 7905736-3 (Version None)
Quarter: 2011Q4

REPORT INFORMATION
  Report Type: 
  Country: None (occurrence: None)
  Receive Date: 20111110
  Receipt Date: 20111027
  Transmission Date: 20120403
  Serious: Yes (Hospitalization)
  Sender: FDA-Public Use
  Company Number: GB-AMGEN-GBRCT2011032736

PATIENT
  Age: 13 Year
  Sex: Female

DRUGS (4)
  1. IBUPROFEN [Concomitant]
     Dosage: 400 MG, 4X/DAY
     Route: 048
     Dates: start: 20081201
  2. METHOTREXATE [Concomitant]
     Dosage: 20 MG, WEEKLY
     Route: 058
     Dates: start: 20071001
  3. ETANERCEPT [Suspect]
     Indication: PRODUCT USED FOR UNKNOWN INDICATION
     Dosage: 12.5 MG, 2X/WEEK
     Route: 058
     Dates: start: 20090609, end: 20100810
  4. PREDNISOLONE [Concomitant]
     Dosage: 1 X 5.00 MG, ALTERNATE DAY
     Route: 048
     Dates: start: 20081201

REACTIONS (3)
  - STEVENS-JOHNSON SYNDROME [None]
  - INFECTION [None]
  - VOMITING [None]
